FAERS Safety Report 4720690-3 (Version None)
Quarter: 2005Q3

REPORT INFORMATION
  Report Type: 
  Country: None (occurrence: None)
  Receive Date: 20050721
  Receipt Date: 20050712
  Transmission Date: 20060218
  Serious: Yes (Other)
  Sender: FDA-Public Use
  Company Number: US-JNJFOC-20050702556

PATIENT
  Sex: Male

DRUGS (3)
  1. CONCERTA [Suspect]
  2. CONCERTA [Suspect]
  3. CONCERTA [Suspect]

REACTIONS (5)
  - FALL [None]
  - FEELING ABNORMAL [None]
  - LOSS OF CONSCIOUSNESS [None]
  - MIGRAINE [None]
  - VOMITING [None]
